FAERS Safety Report 8153215-3 (Version None)
Quarter: 2012Q1

REPORT INFORMATION
  Report Type: 
  Country: None (occurrence: None)
  Receive Date: 20120221
  Receipt Date: 20120213
  Transmission Date: 20120608
  Serious: Yes (Death, Hospitalization)
  Sender: FDA-Public Use
  Company Number: DE-JNJFOC-20120206634

PATIENT
  Age: 81 Year
  Sex: Male
  Weight: 68 kg

DRUGS (18)
  1. PALLADONE [Suspect]
     Indication: PAIN
     Route: 048
     Dates: start: 20091125, end: 20091229
  2. METAMIZOLE [Concomitant]
     Indication: PAIN
     Route: 065
     Dates: start: 20091125, end: 20091229
  3. SUNITINIB MALATE [Concomitant]
     Indication: PROSTATE CANCER
     Route: 048
     Dates: start: 20091217, end: 20100107
  4. SCOPOLAMINE [Concomitant]
     Route: 048
     Dates: start: 20091229
  5. MOVIPREP [Concomitant]
     Indication: CONSTIPATION
     Route: 065
     Dates: start: 20091125
  6. OMEPRAZOLE [Concomitant]
     Indication: GASTRITIS PROPHYLAXIS
     Route: 065
     Dates: start: 20091125
  7. KEVATRIL [Concomitant]
     Indication: NAUSEA
     Route: 065
     Dates: start: 20091217, end: 20091229
  8. LYRICA [Concomitant]
     Indication: PAIN
     Route: 065
     Dates: start: 20091125, end: 20091229
  9. PAROXETINE [Concomitant]
     Indication: PALLIATIVE CARE
     Route: 065
     Dates: start: 20091125, end: 20091229
  10. METOCLOPRAMIDE [Concomitant]
     Indication: NAUSEA
     Route: 065
     Dates: start: 20091217
  11. ZOLADEX [Concomitant]
     Route: 065
     Dates: start: 20090801
  12. FUROSEMIDE [Concomitant]
     Indication: OEDEMA
     Route: 048
     Dates: start: 20091229
  13. HALDOL [Suspect]
     Indication: NAUSEA
     Route: 048
     Dates: start: 20091125, end: 20091229
  14. LORAZEPAM [Concomitant]
     Indication: INSOMNIA
     Route: 065
     Dates: start: 20091213, end: 20091217
  15. HYDROMORPHONE HCL [Suspect]
     Indication: PAIN
     Route: 048
     Dates: start: 20091213, end: 20091229
  16. DURAGESIC-100 [Suspect]
     Indication: PAIN
     Route: 062
     Dates: start: 20091229
  17. ZOMETA [Concomitant]
     Route: 065
     Dates: start: 20080801
  18. PREDNISONE [Concomitant]
     Indication: PROSTATE CANCER
     Route: 048
     Dates: start: 20091201, end: 20100111

REACTIONS (4)
  - PROSTATE CANCER [None]
  - DEHYDRATION [None]
  - HEPATOTOXICITY [None]
  - TOXICITY TO VARIOUS AGENTS [None]
